FAERS Safety Report 25193690 (Version 1)
Quarter: 2025Q2

REPORT INFORMATION
  Report Type: Report from Study
  Country: US (occurrence: US)
  Receive Date: 20250414
  Receipt Date: 20250414
  Transmission Date: 20250717
  Serious: Yes (Hospitalization)
  Sender: ABBVIE
  Company Number: US-ABBVIE-6221717

PATIENT
  Age: 69 Year
  Sex: Female

DRUGS (1)
  1. VENCLEXTA [Suspect]
     Active Substance: VENETOCLAX
     Indication: Leukaemia monocytic
     Dosage: DOSE ; 100 MG?TAKE ON DAYS 1-14 OF A 28-DAY CYCLE. TAKE WITH FOOD
     Route: 048

REACTIONS (1)
  - Cellulitis [Unknown]
